FAERS Safety Report 6959508-7 (Version None)
Quarter: 2010Q3

REPORT INFORMATION
  Report Type: 
  Country: None (occurrence: None)
  Receive Date: 20100827
  Receipt Date: 20100817
  Transmission Date: 20110219
  Serious: Yes (Other)
  Sender: FDA-Public Use
  Company Number: 21-703-2010-00003

PATIENT
  Sex: Female
  Weight: 10 kg

DRUGS (1)
  1. PRISMASOL BK 0/0/1.2 [Suspect]
     Indication: FLUID REPLACEMENT
     Dosage: HEMODIALYSIS, INTRAVENOUS
     Dates: start: 20100805

REACTIONS (4)
  - ACID BASE BALANCE ABNORMAL [None]
  - BLOOD BICARBONATE DECREASED [None]
  - BLOOD PRESSURE ABNORMAL [None]
  - LIVER INJURY [None]
